FAERS Safety Report 6394094-4 (Version None)
Quarter: 2009Q4

REPORT INFORMATION
  Report Type: 
  Country: None (occurrence: None)
  Receive Date: 20091008
  Receipt Date: 20091001
  Transmission Date: 20100525
  Serious: Yes (Other)
  Sender: FDA-Public Use
  Company Number: CHNY2009FR01370

PATIENT
  Age: 71 Year
  Sex: Male

DRUGS (8)
  1. NICOTINELL LOZENGE (NCH) [Suspect]
     Indication: SMOKING CESSATION THERAPY
     Dosage: 4-6 TABLETS OF 1 MG DAILY
     Route: 002
     Dates: start: 20071201
  2. CRESTOR [Concomitant]
     Dosage: UNK
     Dates: start: 20081201, end: 20090312
  3. VERAPAMIL [Concomitant]
     Indication: HYPERTENSION
     Dosage: UNK
     Dates: start: 20090101
  4. ALDACTAZINE [Concomitant]
     Indication: HYPERTENSION
     Dosage: UNK
     Dates: start: 20090101
  5. PERMIXON [Concomitant]
  6. MOPRAL [Concomitant]
  7. BROMAZEPAM [Concomitant]
     Dosage: 0.25 DF, BID
  8. RIVOTRIL [Concomitant]
     Dosage: 3 DRP, QD

REACTIONS (3)
  - DRUG DEPENDENCE [None]
  - PARAESTHESIA [None]
  - URTICARIA [None]
